FAERS Safety Report 7565698-8 (Version None)
Quarter: 2011Q2

REPORT INFORMATION
  Report Type: 
  Country: None (occurrence: None)
  Receive Date: 20110623
  Receipt Date: 20100618
  Transmission Date: 20111010
  Serious: No
  Sender: FDA-Public Use
  Company Number: US-MUTUAL PHARMACEUTICAL COMPANY, INC.-1-23125628

PATIENT
  Sex: Female
  Weight: 60.836 kg

DRUGS (3)
  1. UNK [Concomitant]
  2. REGLAN [Suspect]
     Route: 065
     Dates: start: 19890701, end: 20090101
  3. METOCLOPRAMIDE [Suspect]
     Route: 065
     Dates: start: 19890701, end: 20090101

REACTIONS (4)
  - EMOTIONAL DISORDER [None]
  - DYSKINESIA [None]
  - INCORRECT DRUG ADMINISTRATION DURATION [None]
  - EXTRAPYRAMIDAL DISORDER [None]
